FAERS Safety Report 18782624 (Version 1)
Quarter: 2021Q1

REPORT INFORMATION
  Report Type: Spontaneous
  Country: US (occurrence: US)
  Receive Date: 20210125
  Receipt Date: 20210125
  Transmission Date: 20210419
  Serious: No
  Sender: FDA-Public Use
  Company Number: US-ALLERGAN-2024862US

PATIENT
  Sex: Female

DRUGS (1)
  1. RESTASIS [Suspect]
     Active Substance: CYCLOSPORINE
     Indication: DRY EYE
     Dosage: 1 DF, BID (EVERY 10 HRS)
     Route: 047

REACTIONS (5)
  - Inappropriate schedule of product administration [Unknown]
  - Eye pruritus [Not Recovered/Not Resolved]
  - Accidental exposure to product [Unknown]
  - Product dose omission issue [Unknown]
  - Drug ineffective [Unknown]
